FAERS Safety Report 5066110-3 (Version None)
Quarter: 2006Q3

REPORT INFORMATION
  Report Type: 
  Country: None (occurrence: None)
  Receive Date: 20060725
  Receipt Date: 20060711
  Transmission Date: 20061208
  Serious: Yes (Hospitalization, Other)
  Sender: FDA-Public Use
  Company Number: JP-ITMN-2003IM000829

PATIENT
  Age: 66 Year
  Sex: Female
  Weight: 42.8 kg

DRUGS (12)
  1. INTERFERON ALFACON-1 [Suspect]
     Indication: HEPATITIS C
     Dosage: SEE IMAGE
     Route: 058
     Dates: start: 20020726, end: 20020805
  2. INTERFERON ALFACON-1 [Suspect]
     Indication: HEPATITIS C
     Dosage: SEE IMAGE
     Route: 058
     Dates: start: 20020806, end: 20020808
  3. FAMOTIDINE [Concomitant]
  4. LOSARTAN POTASSIUM [Concomitant]
  5. EPINASTINE HYDROCHLORIDE [Concomitant]
  6. TEPRENONE [Concomitant]
  7. LEVOTHYROXINE SODIUM [Concomitant]
  8. LACTOBACILLUS BIFIDUS, LYOPHILIZED [Concomitant]
  9. SULPIRIDE [Concomitant]
  10. MEFENAMIC ACID [Concomitant]
  11. URSODEOXYCHOLIC ACID [Concomitant]
  12. KETOTIFEN FUMARATE [Concomitant]

REACTIONS (6)
  - GASTROENTERITIS [None]
  - HEADACHE [None]
  - INFLUENZA [None]
  - PANCYTOPENIA [None]
  - PYELONEPHRITIS [None]
  - WHITE BLOOD CELL COUNT DECREASED [None]
